FAERS Safety Report 6656260-X (Version None)
Quarter: 2010Q1

REPORT INFORMATION
  Report Type: 
  Country: None (occurrence: None)
  Receive Date: 20100329
  Receipt Date: 20100318
  Transmission Date: 20100710
  Serious: Yes (Other)
  Sender: FDA-Public Use
  Company Number: AR-GENZYME-CERZ-1001228

PATIENT
  Age: 20 Year
  Sex: Male

DRUGS (2)
  1. CEREZYME [Suspect]
     Indication: GAUCHER'S DISEASE
  2. LOTRIAL [Concomitant]
     Indication: DRUG USE FOR UNKNOWN INDICATION
     Dosage: UNK

REACTIONS (5)
  - EPISTAXIS [None]
  - HEPATOMEGALY [None]
  - NEPHRITIC SYNDROME [None]
  - PROTEINURIA [None]
  - SWELLING [None]
